FAERS Safety Report 5828550-1 (Version None)
Quarter: 2008Q3

REPORT INFORMATION
  Report Type: 
  Country: None (occurrence: None)
  Receive Date: 20080731
  Receipt Date: 20080722
  Transmission Date: 20090109
  Serious: Yes (Hospitalization)
  Sender: FDA-Public Use
  Company Number: US-JNJFOC-20080504698

PATIENT
  Sex: Female
  Weight: 53.52 kg

DRUGS (29)
  1. DURAGESIC-100 [Suspect]
     Indication: DRUG USE FOR UNKNOWN INDICATION
     Route: 062
  2. PERCOCET [Suspect]
     Indication: DRUG USE FOR UNKNOWN INDICATION
     Dosage: 5/325MG AS OCCASION REQUIRES
     Route: 048
  3. PACLITAXEL [Suspect]
     Indication: NON-SMALL CELL LUNG CANCER
     Dosage: ON DAY 1 OF 21 DAY CYCLE
     Route: 042
  4. CARBOPLATIN [Suspect]
     Indication: NON-SMALL CELL LUNG CANCER
     Dosage: ON DAY 1 OF 21 DAY CYCLE
     Route: 042
  5. PF-3512676 [Suspect]
     Indication: NON-SMALL CELL LUNG CANCER
     Dosage: ON DAY 8 AND DAY 15 OF 21 DAY CYCLE
     Route: 058
  6. CRESTOR [Concomitant]
     Route: 048
  7. ZYRTEC [Concomitant]
     Route: 048
  8. NEURONTIN [Concomitant]
     Route: 048
  9. PLAVIX [Concomitant]
     Route: 048
  10. ZOLOFT [Concomitant]
     Route: 048
  11. DEXAMETHASONE [Concomitant]
     Dosage: 12 HOURS AND 6 HOURS PRIOR TO CHEMOTHERAPY EVERY 21 DAYS
     Route: 048
  12. PROMETHAZINE [Concomitant]
     Route: 048
  13. ZOFRAN [Concomitant]
     Route: 048
  14. EMLA [Concomitant]
     Dosage: APPLIED TO PORT SITE PRIOR TO ACCESS
     Route: 061
  15. NEXIUM [Concomitant]
     Route: 048
  16. IBUPROFEN [Concomitant]
     Route: 048
  17. SYNTHROID [Concomitant]
     Route: 048
  18. SLOW-MAG [Concomitant]
     Route: 048
  19. XANAX [Concomitant]
     Route: 048
  20. MEGACE [Concomitant]
     Route: 048
  21. LUNESTA [Concomitant]
     Route: 048
  22. REQUIP [Concomitant]
     Route: 048
  23. CARAFATE [Concomitant]
     Route: 048
  24. EMEND [Concomitant]
     Dosage: DAY 2 AND 3 POST CHEMOTHERAPY EVERY 21 DAYS
     Route: 048
  25. EMEND [Concomitant]
     Dosage: DAY 1 PRIOR TO CHEMOTHERAPY EVERY 21 DAYS
     Route: 048
  26. TAGAMET [Concomitant]
     Dosage: DAY 1 EVERY 21 DAYS PRIOR TO CHEMOTHERAPY
     Route: 042
  27. BENADRYL [Concomitant]
     Dosage: DAY 1 EVERY 21 DAYS PRIOR TO CHEMOTHERAPY
     Route: 042
  28. ATIVAN [Concomitant]
     Dosage: DAY 1 EVERY 21 DAYS PRIOR TO CHEMOTHERAPY
     Route: 042
  29. ALOXI [Concomitant]
     Dosage: DAY 1 EVERY 21 DAYS PRIOR TO CHEMOTHERAPY
     Route: 042

REACTIONS (1)
  - METABOLIC ENCEPHALOPATHY [None]
